FAERS Safety Report 9649433 (Version 2)
Quarter: 2014Q2

REPORT INFORMATION
  Report Type: Spontaneous
  Country: US (occurrence: None)
  Receive Date: 20131018
  Receipt Date: 20140421
  Transmission Date: 20141212
  Serious: Yes (Other)
  Sender: FDA-Public Use
  Company Number: AEGR000089

PATIENT
  Age: 71 Year
  Sex: Female
  Weight: 81.6 kg

DRUGS (3)
  1. JUXTAPID [Suspect]
     Indication: TYPE IIA HYPERLIPIDAEMIA
     Route: 048
     Dates: start: 20130627, end: 20130629
  2. ALEVE (NAPROXEN SODIUM) UNKNOWN, 220 MG [Concomitant]
  3. SYNTHROID (LEVOTHYROXINE SODIUM) TABLET, 100 MCG [Concomitant]

REACTIONS (2)
  - Diarrhoea [None]
  - Gastrointestinal disorder [None]
